FAERS Safety Report 8218156-1 (Version None)
Quarter: 2012Q1

REPORT INFORMATION
  Report Type: 
  Country: None (occurrence: None)
  Receive Date: 20120319
  Receipt Date: 20120222
  Transmission Date: 20120608
  Serious: No
  Sender: FDA-Public Use
  Company Number: JP-ROCHE-1047783

PATIENT
  Age: 91 Year
  Sex: Male

DRUGS (13)
  1. ZOLPIDEM [Concomitant]
     Dosage: DOSAGE IS UNCERTAIN.
     Route: 048
  2. MUCOSTA [Concomitant]
     Dosage: DOSAGE IS UNCERTAIN.
     Route: 048
  3. CEFAZOLIN SODIUM [Concomitant]
     Dosage: DOSAGE IS UNCERTAIN.
     Route: 048
  4. OMEPRAZOLE [Concomitant]
     Dosage: DOSAGE IS UNCERTAIN.
     Route: 048
  5. TAMIFLU [Suspect]
     Route: 048
     Dates: start: 20120222
  6. OPALMON [Concomitant]
     Dosage: DOSAGE IS UNCERTAIN.
     Route: 048
  7. ONEALFA [Concomitant]
     Dosage: DOSAGE IS UNCERTAIN.
     Route: 048
  8. TAMIFLU [Suspect]
     Indication: INFLUENZA
     Route: 048
     Dates: start: 20120221, end: 20120221
  9. URIEF [Concomitant]
     Dosage: DOSAGE IS UNCERTAIN.
     Route: 048
  10. CYANOCOBALAMIN/OCTOTIAMINE/PYRIDOXINE HYDROCHLORIDE/RIBOFLAVIN [Concomitant]
     Dosage: DOSAGE IS UNCERTAIN.
     Route: 048
  11. TALION (JAPAN) [Concomitant]
     Dosage: DOSAGE IS UNCERTAIN.
     Route: 048
  12. AMLODIPINE [Concomitant]
     Dosage: DOSAGE IS UNCERTAIN.
     Route: 048
  13. OLMESARTAN MEDOXOMIL [Concomitant]
     Dosage: DOSAGE IS UNCERTAIN.
     Route: 048

REACTIONS (1)
  - OVERDOSE [None]
